FAERS Safety Report 10373489 (Version 3)
Quarter: 2014Q4

REPORT INFORMATION
  Report Type: Spontaneous
  Country: US (occurrence: US)
  Receive Date: 20140808
  Receipt Date: 20141223
  Transmission Date: 20150528
  Serious: No
  Sender: FDA-Public Use
  Company Number: US-ELI_LILLY_AND_COMPANY-US201408003196

PATIENT
  Age: 38 Year
  Sex: Female
  Weight: 80.7 kg

DRUGS (3)
  1. CYMBALTA [Suspect]
     Active Substance: DULOXETINE HYDROCHLORIDE
     Indication: DEPRESSION
     Dosage: 30 MG, QD
     Route: 048
     Dates: start: 20140625, end: 20140730
  2. BARICITINIB [Concomitant]
     Indication: RHEUMATOID ARTHRITIS
     Dosage: UNK
     Dates: end: 20140725
  3. METHOTREXATE [Concomitant]
     Active Substance: METHOTREXATE
     Dosage: UNK
     Dates: end: 20140725

REACTIONS (4)
  - Blood alkaline phosphatase increased [Recovering/Resolving]
  - Alanine aminotransferase increased [Recovering/Resolving]
  - Aspartate aminotransferase increased [Recovering/Resolving]
  - Hepatic steatosis [Recovering/Resolving]

NARRATIVE: CASE EVENT DATE: 20140723
